FAERS Safety Report 11305203 (Version 1)
Quarter: 2015Q3

REPORT INFORMATION
  Report Type: Spontaneous
  Country: US (occurrence: US)
  Receive Date: 20150723
  Receipt Date: 20150723
  Transmission Date: 20151125
  Serious: No
  Sender: FDA-Public Use
  Company Number: US-JNJFOC-20150312246

PATIENT
  Age: 97 Year
  Sex: Male
  Weight: 58.97 kg

DRUGS (4)
  1. PROTEINS NOS [Concomitant]
     Indication: PROTEIN TOTAL
     Route: 065
     Dates: start: 20150308
  2. XANAX [Concomitant]
     Active Substance: ALPRAZOLAM
     Indication: SLEEP DISORDER THERAPY
     Dosage: INTERVAL YEARS; UNSURE OF START DATE
     Route: 065
  3. ZYRTEC [Suspect]
     Active Substance: CETIRIZINE HYDROCHLORIDE
     Route: 048
  4. ZYRTEC [Suspect]
     Active Substance: CETIRIZINE HYDROCHLORIDE
     Indication: INCREASED APPETITE
     Route: 048
     Dates: end: 20150312

REACTIONS (2)
  - Somnolence [Recovering/Resolving]
  - Product use issue [Unknown]
